FAERS Safety Report 8592985 (Version 3)
Quarter: 2013Q2

REPORT INFORMATION
  Report Type: Spontaneous
  Country: US (occurrence: US)
  Receive Date: 20120604
  Receipt Date: 20130617
  Transmission Date: 20140414
  Serious: Yes (Disabling)
  Sender: FDA-Public Use
  Company Number: US-ASTRAZENECA-2012SE34763

PATIENT
  Age: 59 Year
  Sex: Female

DRUGS (7)
  1. NEXIUM [Suspect]
     Route: 048
  2. NEXIUM [Suspect]
     Dosage: 1 A DAY BEFORE BREAKFAST
     Route: 048
     Dates: start: 2011, end: 2012
  3. PRILOSEC [Suspect]
     Dosage: 1 A DAY BEFORE BREAKFAST
     Route: 048
  4. LISINOPRIL [Concomitant]
  5. METFORMIN HCL [Concomitant]
  6. SIMVASTATIN [Concomitant]
  7. MELOXICAM [Concomitant]

REACTIONS (5)
  - Back pain [Unknown]
  - Osteoporosis [Unknown]
  - Multiple fractures [Unknown]
  - Arthritis [Unknown]
  - Diabetes mellitus [Unknown]
